FAERS Safety Report 17017802 (Version 6)
Quarter: 2021Q3

REPORT INFORMATION
  Report Type: Spontaneous
  Country: US (occurrence: US)
  Receive Date: 20191111
  Receipt Date: 20210802
  Transmission Date: 20211014
  Serious: Yes (Hospitalization, Disabling, Other)
  Sender: FDA-Public Use
  Company Number: US-SHIRE-US201938491

PATIENT
  Age: 37 Year
  Sex: Female

DRUGS (10)
  1. CALCIUM [Concomitant]
     Active Substance: CALCIUM
  2. NATPARA (PARATHYROID HORMONE) [Suspect]
     Active Substance: PARATHYROID HORMONE
     Indication: HYPOPARATHYROIDISM
     Dosage: 100 MICROGRAM, 1X/DAY:QD
     Route: 058
     Dates: start: 20161201
  3. NATPARA (PARATHYROID HORMONE) [Suspect]
     Active Substance: PARATHYROID HORMONE
     Dosage: 75 MICROGRAM, QD
     Route: 065
  4. NATPARA (PARATHYROID HORMONE) [Suspect]
     Active Substance: PARATHYROID HORMONE
     Dosage: 75 MICROGRAM, QD
     Route: 065
  5. NATPARA (PARATHYROID HORMONE) [Suspect]
     Active Substance: PARATHYROID HORMONE
     Indication: HYPOPARATHYROIDISM
     Dosage: 100 MICROGRAM, 1X/DAY:QD
     Route: 058
     Dates: start: 20161201
  6. NATPARA (PARATHYROID HORMONE) [Suspect]
     Active Substance: PARATHYROID HORMONE
     Dosage: 75 MICROGRAM, QD
     Route: 065
  7. VITAMIN D [VITAMIN D NOS] [Concomitant]
     Active Substance: VITAMIN D NOS
  8. NATPARA (PARATHYROID HORMONE) [Suspect]
     Active Substance: PARATHYROID HORMONE
     Indication: HYPOPARATHYROIDISM
     Dosage: 100 MICROGRAM, 1X/DAY:QD
     Route: 058
     Dates: start: 20161201
  9. CALCITRIOL. [Concomitant]
     Active Substance: CALCITRIOL
  10. FORTEO [Concomitant]
     Active Substance: TERIPARATIDE

REACTIONS (5)
  - Hypocalcaemia [Not Recovered/Not Resolved]
  - Tetany [Not Recovered/Not Resolved]
  - Recalled product [Unknown]
  - Cerebral calcification [Not Recovered/Not Resolved]
  - Condition aggravated [Not Recovered/Not Resolved]

NARRATIVE: CASE EVENT DATE: 20190906
